FAERS Safety Report 9310575 (Version 5)
Quarter: 2019Q3

REPORT INFORMATION
  Report Type: Spontaneous
  Country: ES (occurrence: ES)
  Receive Date: 20130527
  Receipt Date: 20190912
  Transmission Date: 20191005
  Serious: Yes (Hospitalization)
  Sender: FDA-Public Use
  Company Number: ES-AMGEN-ESPCT2013034688

PATIENT
  Age: 69 Year
  Sex: Female
  Weight: 68 kg

DRUGS (16)
  1. ENBREL [Suspect]
     Active Substance: ETANERCEPT
     Indication: RHEUMATOID ARTHRITIS
     Dosage: 50 MG, WEEKLY
     Route: 058
     Dates: start: 20120711
  2. PARACETAMOL [Concomitant]
     Active Substance: ACETAMINOPHEN
     Dosage: 1 G, 1X/DAY
     Route: 048
     Dates: start: 201203
  3. ESOMEPRAZOLE. [Concomitant]
     Active Substance: ESOMEPRAZOLE MAGNESIUM
     Dosage: 20 MG, 1X/DAY
     Route: 048
  4. SIMVASTATIN. [Concomitant]
     Active Substance: SIMVASTATIN
     Dosage: 10 MG, 1X/DAY
     Route: 048
     Dates: start: 20121003
  5. IBANDRONATE [Concomitant]
     Active Substance: IBANDRONATE SODIUM
     Dosage: 150 MG, 1X/DAY
     Route: 048
  6. FOLIC ACID. [Concomitant]
     Active Substance: FOLIC ACID
     Dosage: 5 MG, 2X/WEEK
     Route: 048
  7. EBASTINE [Concomitant]
     Active Substance: EBASTINE
     Dosage: 1 DF, 1X/DAY
     Route: 048
     Dates: start: 20120829, end: 20120917
  8. HEPATITIS B VACCINE [Concomitant]
     Active Substance: HEPATITIS B VIRUS VACCINE
     Dosage: SINGLE DOSE 1 UNIT
     Route: 030
     Dates: start: 20130114, end: 20130114
  9. LEFLUNOMIDE. [Concomitant]
     Active Substance: LEFLUNOMIDE
     Dosage: 10 MG, 1X/DAY
     Route: 048
  10. AMLODIPINO [AMLODIPINE] [Concomitant]
     Dosage: 10 MG, 1X/DAY
     Route: 048
     Dates: start: 201301
  11. SERTRALINE [Concomitant]
     Active Substance: SERTRALINE HYDROCHLORIDE
     Dosage: 1 DF, 1X/DAY
     Route: 048
     Dates: start: 201202, end: 20121007
  12. LOSARTAN POTASSIUM W/HYDROCHLOROTHIAZIDE [Concomitant]
     Active Substance: HYDROCHLOROTHIAZIDE\LOSARTAN POTASSIUM
     Dosage: 1 TABLET (EVERY DAY)
     Route: 048
     Dates: start: 201301
  13. PNEUMOCOCCAL VACCINE POLYVALENT NOS [Concomitant]
     Active Substance: PNEUMOCOCCAL VACCINE POLYVALENT
     Dosage: SINGLE DOSE 1 UNIT
     Route: 030
     Dates: start: 20120716, end: 20120716
  14. MANIDIPINO [Concomitant]
     Active Substance: MANIDIPINE
     Dosage: 10 MG, UNK
     Route: 048
     Dates: start: 201301
  15. NAPROXENO [NAPROXEN] [Concomitant]
     Dosage: 500 MG, 1X/DAY
     Route: 048
  16. KETAZOLAM [Concomitant]
     Active Substance: KETAZOLAM
     Dosage: 45 MG, ALTERNATE DAY
     Dates: start: 1972

REACTIONS (1)
  - Hypertensive emergency [Recovered/Resolved]

NARRATIVE: CASE EVENT DATE: 20130501
